FAERS Safety Report 17413540 (Version 1)
Quarter: 2020Q1

REPORT INFORMATION
  Report Type: Spontaneous
  Country: US (occurrence: US)
  Receive Date: 20200213
  Receipt Date: 20200213
  Transmission Date: 20200409
  Serious: Yes (Death, Hospitalization)
  Sender: FDA-Public Use
  Company Number: None

PATIENT
  Age: 42 Year
  Sex: Female
  Weight: 87.6 kg

DRUGS (3)
  1. EPOPROSTENOL. [Concomitant]
     Active Substance: EPOPROSTENOL
     Dates: start: 20191017, end: 20191103
  2. NITRIC OXIDE. [Concomitant]
     Active Substance: NITRIC OXIDE
     Dates: start: 20190923, end: 20191102
  3. TREPROSTINIL. [Suspect]
     Active Substance: TREPROSTINIL
     Indication: PULMONARY HYPERTENSION
     Dosage: ?          OTHER FREQUENCY:NG/KG/MIN;?
     Route: 042
     Dates: start: 20190921, end: 20191017

REACTIONS (3)
  - Haemodynamic instability [None]
  - Drug ineffective [None]
  - Product substitution issue [None]

NARRATIVE: CASE EVENT DATE: 20191103
